FAERS Safety Report 15900848 (Version 1)
Quarter: 2019Q1

REPORT INFORMATION
  Report Type: Spontaneous
  Country: US (occurrence: US)
  Receive Date: 20190201
  Receipt Date: 20190201
  Transmission Date: 20190417
  Serious: No
  Sender: FDA-Public Use
  Company Number: US-ELI_LILLY_AND_COMPANY-US201901007236

PATIENT
  Sex: Male

DRUGS (3)
  1. GALCANEZUMAB 120MG [Suspect]
     Active Substance: GALCANEZUMAB
     Indication: MIGRAINE
     Dosage: 240 MG, SINGLE
     Route: 058
  2. TRIPTAN [OXITRIPTAN] [Concomitant]
     Active Substance: OXITRIPTAN
     Indication: MIGRAINE
     Route: 065
  3. GALCANEZUMAB 120MG [Suspect]
     Active Substance: GALCANEZUMAB
     Dosage: 120 MG, MONTHLY (1/M)
     Route: 058

REACTIONS (2)
  - Drug ineffective [Unknown]
  - Headache [Unknown]
